FAERS Safety Report 10338128 (Version 1)
Quarter: 2014Q3

REPORT INFORMATION
  Report Type: Spontaneous
  Country: US (occurrence: None)
  Receive Date: 20140722
  Receipt Date: 20140722
  Transmission Date: 20150326
  Serious: Yes (Hospitalization)
  Sender: FDA-Public Use
  Company Number: None

PATIENT
  Age: 51 Year
  Sex: Male
  Weight: 98.88 kg

DRUGS (12)
  1. VITAMIN B12 [Concomitant]
     Active Substance: CYANOCOBALAMIN
  2. IBUPROFEN. [Concomitant]
     Active Substance: IBUPROFEN
  3. DECADRON [Concomitant]
     Active Substance: DEXAMETHASONE
  4. ALOXI [Concomitant]
     Active Substance: PALONOSETRON HYDROCHLORIDE
  5. FOLFOX (FLUOROURACIL+OXALIPLATIN+LEUCOVORIN) [Concomitant]
  6. AVASTIN + FOLFIRI [Concomitant]
  7. IRON [Concomitant]
     Active Substance: IRON
  8. NEULASTA [Concomitant]
     Active Substance: PEGFILGRASTIM
  9. AVASTIN [Suspect]
     Active Substance: BEVACIZUMAB
     Indication: COLON CANCER METASTATIC
     Dosage: 500MG (5MG/KG), EVERY 2 WEEKS, INTRAVENOUS
     Route: 042
     Dates: start: 20121203, end: 20140428
  10. ATROPINE [Concomitant]
     Active Substance: ATROPINE
  11. AVASTIN + FOLFIRI (FLUOROURACIL+IRINOTECAN+LEUCOVORIN) [Concomitant]
  12. FOLFIRI [Concomitant]
     Active Substance: FLUOROURACIL\IRINOTECAN\LEUCOVORIN

REACTIONS (6)
  - Oesophagitis [None]
  - Gastrointestinal haemorrhage [None]
  - Fatigue [None]
  - Melaena [None]
  - Anaemia [None]
  - Syncope [None]

NARRATIVE: CASE EVENT DATE: 20140505
